FAERS Safety Report 5306969-5 (Version None)
Quarter: 2007Q2

REPORT INFORMATION
  Report Type: 
  Country: None (occurrence: None)
  Receive Date: 20070425
  Receipt Date: 20070418
  Transmission Date: 20071010
  Serious: Yes (Hospitalization)
  Sender: FDA-Public Use
  Company Number: US-JNJFOC-20070404374

PATIENT
  Sex: Male
  Weight: 99.34 kg

DRUGS (11)
  1. FENTANYL TRANSDERMAL SYSTEM [Suspect]
     Indication: PAIN
     Route: 062
  2. ATENOLOL [Concomitant]
     Indication: BLOOD PRESSURE
     Route: 048
  3. HYDROCHLOROTHIAZIDE [Concomitant]
     Indication: BLOOD PRESSURE
     Route: 048
  4. LORATADINE [Concomitant]
     Indication: MULTIPLE ALLERGIES
     Route: 048
  5. DICYCLOMINE [Concomitant]
     Indication: INTESTINAL FUNCTIONAL DISORDER
     Route: 048
  6. ZANAFLEX [Concomitant]
     Indication: MUSCLE SPASMS
     Route: 048
  7. LYRICA [Concomitant]
     Indication: PAIN
     Route: 048
  8. FLUVASTATIN [Concomitant]
     Indication: BLOOD CHOLESTEROL
     Route: 048
  9. LIDODERM [Concomitant]
     Indication: PAIN
     Route: 062
  10. VICODIN [Concomitant]
     Indication: PAIN
     Route: 048
  11. LANSOPRAZOLE [Concomitant]
     Indication: GASTROINTESTINAL DISORDER
     Route: 048

REACTIONS (4)
  - BLOOD PRESSURE DECREASED [None]
  - DEVICE LEAKAGE [None]
  - PHARMACEUTICAL PRODUCT COMPLAINT [None]
  - WRONG TECHNIQUE IN DRUG USAGE PROCESS [None]
